FAERS Safety Report 4889181-3 (Version None)
Quarter: 2006Q1

REPORT INFORMATION
  Report Type: 
  Country: None (occurrence: None)
  Receive Date: 20060124
  Receipt Date: 20060116
  Transmission Date: 20060701
  Serious: Yes (Other)
  Sender: FDA-Public Use
  Company Number: US-JNJFOC-20051101564

PATIENT
  Sex: Male
  Weight: 119.75 kg

DRUGS (1)
  1. REMICADE [Suspect]
     Indication: CROHN'S DISEASE
     Route: 042

REACTIONS (2)
  - ANTINUCLEAR ANTIBODY POSITIVE [None]
  - LUPUS-LIKE SYNDROME [None]
